FAERS Safety Report 21258159 (Version 1)
Quarter: 2022Q3

REPORT INFORMATION
  Report Type: Report from Study
  Country: CA (occurrence: CA)
  Receive Date: 20220826
  Receipt Date: 20220826
  Transmission Date: 20221027
  Serious: Yes (Hospitalization, Other)
  Sender: FDA-Public Use
  Company Number: CA-JNJFOC-20220722526

PATIENT
  Age: 45 Year
  Sex: Male

DRUGS (2)
  1. REMICADE [Suspect]
     Active Substance: INFLIXIMAB
     Indication: Crohn^s disease
     Route: 042
  2. REMICADE [Suspect]
     Active Substance: INFLIXIMAB
     Dosage: PATIENT RECEIVED REMICADE INFUSION 700 MG ON 09-AUG-2022
     Route: 042
     Dates: start: 20200918

REACTIONS (4)
  - Intestinal resection [Unknown]
  - Back pain [Not Recovered/Not Resolved]
  - Nausea [Unknown]
  - Gastrointestinal disorder [Recovering/Resolving]

NARRATIVE: CASE EVENT DATE: 20220101
